FAERS Safety Report 4944317-0 (Version None)
Quarter: 2006Q1

REPORT INFORMATION
  Report Type: 
  Country: None (occurrence: None)
  Receive Date: 20060315
  Receipt Date: 20050414
  Transmission Date: 20060701
  Serious: Yes (Hospitalization, Other)
  Sender: FDA-Public Use
  Company Number: US-MERCK-0504USA02403

PATIENT
  Age: 65 Year
  Sex: Female

DRUGS (2)
  1. VIOXX [Suspect]
     Route: 048
  2. VIOXX [Suspect]
     Route: 048

REACTIONS (8)
  - ANGIONEUROTIC OEDEMA [None]
  - CARDIOMYOPATHY [None]
  - CHEST PAIN [None]
  - DIABETES MELLITUS [None]
  - HYPOKALAEMIA [None]
  - INTENTIONAL OVERDOSE [None]
  - MYOCARDIAL INFARCTION [None]
  - SUICIDE ATTEMPT [None]
